FAERS Safety Report 4590979-X (Version None)
Quarter: 2005Q1

REPORT INFORMATION
  Report Type: 
  Country: None (occurrence: None)
  Receive Date: 20050222
  Receipt Date: 20050222
  Transmission Date: 20050727
  Serious: Yes (Hospitalization)
  Sender: FDA-Public Use
  Company Number: None

PATIENT
  Age: 40 Year
  Sex: Male
  Weight: 92.9874 kg

DRUGS (7)
  1. ZYPREXA [Suspect]
     Indication: BIPOLAR DISORDER
     Dosage: 10 MG PO BID
     Route: 048
     Dates: start: 20050215
  2. ZYPREXA [Suspect]
     Indication: DYSTHYMIC DISORDER
     Dosage: 10 MG PO BID
     Route: 048
     Dates: start: 20050215
  3. PROZAC [Suspect]
     Indication: ANXIETY
     Dosage: 20 MG AM , 60 MG HS PO
     Route: 048
     Dates: start: 20040414
  4. ZANTAC [Concomitant]
  5. PRILOSEC [Concomitant]
  6. ATENOLOL [Concomitant]
  7. PENERGAN [Concomitant]

REACTIONS (1)
  - CONVULSION [None]
